FAERS Safety Report 10009986 (Version 1)
Quarter: 2014Q1

REPORT INFORMATION
  Report Type: Spontaneous
  Country: US (occurrence: US)
  Receive Date: 20140312
  Receipt Date: 20140312
  Transmission Date: 20141002
  Serious: No
  Sender: FDA-Public Use
  Company Number: US-INCYTE CORPORATION-2013IN000968

PATIENT
  Age: 76 Year
  Sex: Male
  Weight: 81.63 kg

DRUGS (7)
  1. JAKAFI [Suspect]
     Dosage: 15 MG, BID
     Route: 048
  2. TERAZOSIN [Concomitant]
  3. LEVOTHYROXINE [Concomitant]
  4. CETIRIZINE [Concomitant]
  5. TEMAZEPAM [Concomitant]
  6. HYDROCODONE [Concomitant]
  7. HOMATROPINE [Concomitant]

REACTIONS (4)
  - Epistaxis [Not Recovered/Not Resolved]
  - Nasal congestion [Not Recovered/Not Resolved]
  - Fatigue [Not Recovered/Not Resolved]
  - Asthenia [Not Recovered/Not Resolved]
